FAERS Safety Report 6700009-9 (Version None)
Quarter: 2010Q2

REPORT INFORMATION
  Report Type: 
  Country: None (occurrence: None)
  Receive Date: 20100428
  Receipt Date: 20100416
  Transmission Date: 20101027
  Serious: Yes (Other)
  Sender: FDA-Public Use
  Company Number: US-WYE-H14672010

PATIENT
  Sex: Female
  Weight: 85.81 kg

DRUGS (6)
  1. PRISTIQ [Suspect]
     Indication: DEPRESSION
     Route: 048
     Dates: start: 20100101, end: 20100301
  2. PRISTIQ [Suspect]
     Route: 048
     Dates: start: 20100301
  3. PANTOPRAZOLE [Concomitant]
     Dosage: UNKNOWN
  4. VITAMIN B-12 [Concomitant]
  5. FOLIC ACID [Concomitant]
     Dosage: UNKNOWN
  6. PREMARIN [Concomitant]
     Dosage: UNKNOWN

REACTIONS (3)
  - CRYING [None]
  - DRUG INEFFECTIVE [None]
  - SUICIDAL IDEATION [None]
